FAERS Safety Report 10201587 (Version 1)
Quarter: 2014Q2

REPORT INFORMATION
  Report Type: Spontaneous
  Country: US (occurrence: US)
  Receive Date: 20140528
  Receipt Date: 20140528
  Transmission Date: 20141212
  Serious: No
  Sender: FDA-Public Use
  Company Number: US-009507513-1405USA012121

PATIENT
  Sex: Female

DRUGS (2)
  1. ZEGERID OTC CAPSULES [Suspect]
     Indication: PRODUCT USED FOR UNKNOWN INDICATION
     Dosage: UNK, UNKNOWN
     Route: 048
     Dates: start: 201405, end: 201405
  2. ZEGERID OTC CAPSULES [Suspect]
     Dosage: UNK, UNKNOWN
     Route: 048
     Dates: start: 201405

REACTIONS (4)
  - Abdominal discomfort [Unknown]
  - Chest pain [Unknown]
  - Regurgitation [Unknown]
  - Product quality issue [Unknown]
